FAERS Safety Report 12463312 (Version 4)
Quarter: 2016Q3

REPORT INFORMATION
  Report Type: Report from Study
  Country: JP (occurrence: JP)
  Receive Date: 20160614
  Receipt Date: 20160708
  Transmission Date: 20161109
  Serious: Yes (Other)
  Sender: FDA-Public Use
  Company Number: JP-SUN PHARMACEUTICAL INDUSTRIES LTD-2016RR-118423

PATIENT
  Age: 78 Year
  Sex: Female

DRUGS (3)
  1. CLOPIDOGREL [Suspect]
     Active Substance: CLOPIDOGREL BISULFATE
     Indication: MYOCARDIAL INFARCTION
     Dosage: UNK
     Route: 065
  2. PACLITAXEL. [Interacting]
     Active Substance: PACLITAXEL
     Indication: LUNG SQUAMOUS CELL CARCINOMA STAGE II
     Dosage: WEEKLY, 6 COURSES, THE DOSE WAS 60.0MG PER WEEK
     Route: 065
  3. CARBOPLATIN. [Concomitant]
     Active Substance: CARBOPLATIN
     Indication: LUNG SQUAMOUS CELL CARCINOMA STAGE II
     Dosage: WEEKLY, 6 COURSES
     Route: 065

REACTIONS (3)
  - Drug interaction [Unknown]
  - Neutropenia [Unknown]
  - Leukopenia [Unknown]
